FAERS Safety Report 15011243 (Version 2)
Quarter: 2018Q2

REPORT INFORMATION
  Report Type: Spontaneous
  Country: US (occurrence: US)
  Receive Date: 20180207
  Receipt Date: 20180214
  Transmission Date: 20180711
  Serious: No
  Sender: FDA-Public Use
  Company Number: US-KEDRION-2018-18

PATIENT
  Age: 26 Year
  Sex: Female

DRUGS (1)
  1. RHOGAM [Suspect]
     Active Substance: HUMAN RHO(D) IMMUNE GLOBULIN
     Indication: PROPHYLAXIS AGAINST RH ISOIMMUNISATION

REACTIONS (1)
  - Urticaria [Recovered/Resolved]
